FAERS Safety Report 8586182-9 (Version None)
Quarter: 2012Q3

REPORT INFORMATION
  Report Type: 
  Country: None (occurrence: None)
  Receive Date: 20120810
  Receipt Date: 20120801
  Transmission Date: 20120928
  Serious: Yes (Hospitalization)
  Sender: FDA-Public Use
  Company Number: FR-GLAXOSMITHKLINE-B0819949A

PATIENT
  Sex: Female

DRUGS (6)
  1. FUROSEMIDE [Concomitant]
     Dosage: 10MG PER DAY
  2. LEVOTHYROXINE SODIUM [Concomitant]
  3. DICLOFENAC [Concomitant]
     Indication: RIB FRACTURE
     Dosage: 150MG PER DAY
     Dates: start: 20120411
  4. EFFEXOR [Concomitant]
     Dosage: 75MG PER DAY
  5. ARIXTRA [Suspect]
     Indication: PRODUCT USED FOR UNKNOWN INDICATION
     Route: 058
     Dates: end: 20120513
  6. FOSINOPRIL 10 [Concomitant]
     Dosage: 10MG PER DAY

REACTIONS (3)
  - ABDOMINAL WALL HAEMATOMA [None]
  - RENAL FAILURE ACUTE [None]
  - ERYSIPELAS [None]
